FAERS Safety Report 4538637-1 (Version None)
Quarter: 2004Q4

REPORT INFORMATION
  Report Type: 
  Country: None (occurrence: None)
  Receive Date: 20041223
  Receipt Date: 20041207
  Transmission Date: 20050328
  Serious: Yes (Hospitalization)
  Sender: FDA-Public Use
  Company Number: 2004-BP-12113NB(1)

PATIENT
  Age: 69 Year
  Sex: Male

DRUGS (3)
  1. MOBIC [Suspect]
     Indication: BACK PAIN
     Dosage: 10 MG PO
     Route: 048
     Dates: start: 20040405, end: 20041105
  2. GLIMICRON (GLICLAZIDE) (TA) [Suspect]
     Indication: DIABETES MELLITUS
     Dosage: 40 MG PO
     Route: 048
     Dates: start: 20031110, end: 20041105
  3. SOLON (SOFALCONE) (UNK) [Suspect]
     Indication: GASTRITIS
     Dosage: 50 MG PO
     Route: 048
     Dates: start: 20030405, end: 20041105

REACTIONS (1)
  - INTERSTITIAL LUNG DISEASE [None]
